FAERS Safety Report 18879620 (Version 6)
Quarter: 2022Q2

REPORT INFORMATION
  Report Type: Report from Study
  Country: JP (occurrence: JP)
  Receive Date: 20210211
  Receipt Date: 20220406
  Transmission Date: 20220721
  Serious: Yes (Hospitalization, Other)
  Sender: FDA-Public Use
  Company Number: JP-KYOWAKIRIN-2021AKK001532

PATIENT

DRUGS (77)
  1. MOGAMULIZUMAB [Suspect]
     Active Substance: MOGAMULIZUMAB
     Indication: Adult T-cell lymphoma/leukaemia
     Dosage: 1 MG/KG
     Route: 041
     Dates: start: 20170831, end: 20170831
  2. MOGAMULIZUMAB [Suspect]
     Active Substance: MOGAMULIZUMAB
     Dosage: 1 MG/KG
     Route: 041
     Dates: start: 20171004, end: 20171004
  3. REVLIMID [Suspect]
     Active Substance: LENALIDOMIDE
     Indication: Adult T-cell lymphoma/leukaemia
     Dosage: UNK
     Route: 048
  4. DEXCHLORPHENIRAMINE MALEATE [Concomitant]
     Active Substance: DEXCHLORPHENIRAMINE MALEATE
     Indication: Prophylaxis
     Dosage: UNK
     Route: 048
     Dates: start: 20170831, end: 20170831
  5. DEXCHLORPHENIRAMINE MALEATE [Concomitant]
     Active Substance: DEXCHLORPHENIRAMINE MALEATE
     Dosage: UNK
     Route: 048
     Dates: start: 20171004, end: 20171004
  6. DEXAMETHASONE SODIUM PHOSPHATE [Concomitant]
     Active Substance: DEXAMETHASONE SODIUM PHOSPHATE
     Indication: Prophylaxis
     Dosage: 6.6 MG
     Route: 065
     Dates: start: 20170831, end: 20170831
  7. DEXAMETHASONE SODIUM PHOSPHATE [Concomitant]
     Active Substance: DEXAMETHASONE SODIUM PHOSPHATE
     Dosage: 6.6 MG
     Route: 065
     Dates: start: 20171004, end: 20171004
  8. ISCOTIN [Concomitant]
     Active Substance: ISONIAZID
     Indication: Infection prophylaxis
     Dosage: UNK
     Route: 048
     Dates: start: 20170831
  9. SULFAMETHOXAZOLE\TRIMETHOPRIM [Concomitant]
     Active Substance: SULFAMETHOXAZOLE\TRIMETHOPRIM
     Indication: Infection prophylaxis
     Dosage: UNK
     Route: 048
     Dates: start: 20170831
  10. FLUCONAZOLE [Concomitant]
     Active Substance: FLUCONAZOLE
     Indication: Infection prophylaxis
     Dosage: UNK
     Route: 048
     Dates: start: 20170831
  11. LOXOPROFEN [Concomitant]
     Active Substance: LOXOPROFEN
     Indication: Dysuria
     Dosage: UNK
     Route: 048
     Dates: start: 20170923, end: 20170930
  12. LOXOPROFEN [Concomitant]
     Active Substance: LOXOPROFEN
     Indication: Pyrexia
  13. MAGNESIUM OXIDE [Concomitant]
     Active Substance: MAGNESIUM OXIDE
     Indication: Prophylaxis
     Dosage: UNK
     Route: 048
     Dates: start: 20170831
  14. SILODOSIN [Concomitant]
     Active Substance: SILODOSIN
     Indication: Dysuria
     Dosage: UNK
     Route: 048
     Dates: start: 20170926
  15. XYZAL [Concomitant]
     Active Substance: LEVOCETIRIZINE DIHYDROCHLORIDE
     Indication: Prophylaxis
     Dosage: UNK
     Route: 048
     Dates: start: 20170831
  16. MIYA-BM [Concomitant]
     Active Substance: CLOSTRIDIUM BUTYRICUM SPORES STRAIN M-55
     Indication: Prophylaxis
     Dosage: UNK
     Route: 048
     Dates: start: 20170831
  17. UBIDECARENONE [Concomitant]
     Active Substance: UBIDECARENONE
     Indication: Prophylaxis
     Dosage: UNK
     Route: 048
     Dates: start: 20170831
  18. CEFCAPENE PIVOXIL HYDROCHLORIDE [Concomitant]
     Active Substance: CEFCAPENE PIVOXIL HYDROCHLORIDE
     Indication: Infection prophylaxis
     Dosage: UNK
     Route: 048
     Dates: start: 20170930, end: 20171003
  19. CEFCAPENE PIVOXIL HYDROCHLORIDE [Concomitant]
     Active Substance: CEFCAPENE PIVOXIL HYDROCHLORIDE
     Indication: Infusion related reaction
     Dosage: UNK
     Route: 048
     Dates: start: 20170930, end: 20170930
  20. RABEPRAZOLE SODIUM [Concomitant]
     Active Substance: RABEPRAZOLE SODIUM
     Indication: Prophylaxis
     Dosage: UNK
     Route: 048
     Dates: start: 20170831
  21. VILDAGLIPTIN [Concomitant]
     Active Substance: VILDAGLIPTIN
     Indication: Diabetes mellitus
     Dosage: UNK
     Route: 048
     Dates: start: 20170914, end: 20171129
  22. OLOPATADINE HYDROCHLORIDE [Concomitant]
     Active Substance: OLOPATADINE HYDROCHLORIDE
     Indication: Prophylaxis
     Dosage: UNK
     Route: 048
     Dates: start: 20170831
  23. SAMSCA [Concomitant]
     Active Substance: TOLVAPTAN
     Indication: Prophylaxis
     Dosage: UNK
     Route: 048
     Dates: start: 20171031
  24. HERBALS [Concomitant]
     Active Substance: HERBALS
     Indication: Dysuria
     Dosage: UNK
     Route: 048
     Dates: start: 20170926
  25. SENNOSIDES A AND B [Concomitant]
     Active Substance: SENNOSIDES A AND B
     Indication: Prophylaxis
     Dosage: UNK
     Route: 048
     Dates: start: 20170913
  26. FEBUXOSTAT [Concomitant]
     Active Substance: FEBUXOSTAT
     Indication: Prophylaxis
     Dosage: UNK
     Route: 048
     Dates: start: 20170831
  27. ASPIRIN [Concomitant]
     Active Substance: ASPIRIN
     Indication: Prophylaxis
     Dosage: UNK
     Route: 048
     Dates: start: 20171114, end: 20171129
  28. PREDONINE [Concomitant]
     Active Substance: PREDNISOLONE
     Indication: Prophylaxis
     Dosage: UNK
     Route: 048
     Dates: start: 20171108
  29. EDOXABAN TOSYLATE [Concomitant]
     Active Substance: EDOXABAN TOSYLATE
     Indication: Prophylaxis
     Dosage: UNK
     Route: 048
     Dates: start: 20171204, end: 20171204
  30. CALONAL [Concomitant]
     Active Substance: ACETAMINOPHEN
     Indication: Pyrexia
     Dosage: UNK
     Route: 048
     Dates: start: 20170919, end: 20171109
  31. S ADCHNON [Concomitant]
     Indication: Prophylaxis
     Dosage: UNK
     Route: 048
     Dates: start: 20171010, end: 20171030
  32. GLYCERIN [Concomitant]
     Active Substance: GLYCERIN
     Indication: Cancer surgery
     Dosage: UNK
     Route: 054
     Dates: start: 20171130, end: 20171201
  33. DEXAMETHASONE [Concomitant]
     Active Substance: DEXAMETHASONE
     Indication: Aphthous ulcer
     Dosage: UNK
     Route: 061
     Dates: start: 20170915, end: 20170916
  34. VALGANCICLOVIR [Concomitant]
     Active Substance: VALGANCICLOVIR
     Indication: Cytomegalovirus infection
     Dosage: UNK
     Route: 048
     Dates: start: 20171026, end: 20171108
  35. PENTOSAN POLYSULFATE SODIUM [Concomitant]
     Active Substance: PENTOSAN POLYSULFATE SODIUM
     Indication: Rash
     Dosage: UNK
     Route: 061
     Dates: start: 20170918, end: 20170922
  36. FUROSEMIDE [Concomitant]
     Active Substance: FUROSEMIDE
     Indication: Prophylaxis
     Dosage: UNK
     Route: 048
     Dates: start: 20171026
  37. MYSER [DIFLUPREDNATE] [Concomitant]
     Indication: Rash
     Dosage: UNK
     Route: 061
     Dates: start: 20171108, end: 20171108
  38. LOCOID [Concomitant]
     Active Substance: HYDROCORTISONE BUTYRATE
     Indication: Rash
     Dosage: UNK
     Route: 061
     Dates: start: 20171108
  39. GRANISETRON [Concomitant]
     Active Substance: GRANISETRON
     Indication: Infusion related reaction
     Dosage: UNK
     Route: 041
     Dates: start: 20170901, end: 20170904
  40. SAXIZON [Concomitant]
     Active Substance: HYDROCORTISONE SODIUM SUCCINATE
     Indication: Prophylaxis
     Dosage: UNK
     Route: 065
     Dates: start: 20170904, end: 20170911
  41. NOVOLIN R [Concomitant]
     Active Substance: INSULIN HUMAN
     Indication: Diabetes mellitus
     Dosage: UNK
     Route: 065
     Dates: start: 20170901, end: 20170912
  42. SOLU-CORTEF [Concomitant]
     Active Substance: HYDROCORTISONE SODIUM SUCCINATE
     Indication: Prophylaxis
     Dosage: UNK
     Route: 065
     Dates: start: 20171014, end: 20171030
  43. METHYLPREDNISOLONE SODIUM SUCCINATE [Concomitant]
     Active Substance: METHYLPREDNISOLONE SODIUM SUCCINATE
     Indication: Prophylaxis
     Dosage: UNK
     Route: 065
     Dates: start: 20170831, end: 20170831
  44. SOLDEM 3A [Concomitant]
     Active Substance: CARBOHYDRATES\POTASSIUM CHLORIDE\SODIUM CHLORIDE\SODIUM LACTATE
     Indication: Nutritional supplementation
     Dosage: UNK
     Route: 065
  45. DEXTROSE\SODIUM CHLORIDE\SODIUM LACTATE [Concomitant]
     Active Substance: DEXTROSE\SODIUM CHLORIDE\SODIUM LACTATE
     Indication: Nutritional supplementation
     Dosage: UNK
     Route: 065
     Dates: start: 20171202, end: 20171205
  46. DROPERIDOL [Concomitant]
     Active Substance: DROPERIDOL
     Indication: Induction of anaesthesia
     Dosage: UNK
     Route: 065
     Dates: start: 20171202, end: 20171202
  47. PANTOL [PANTHENOL] [Concomitant]
     Indication: Nutritional supplementation
     Dosage: UNK
     Route: 065
     Dates: start: 20170913, end: 20170914
  48. CALCIUM CHLORIDE ANHYDROUS\POTASSIUM CHLORIDE\SODIUM CHLORIDE\SODIUM L [Concomitant]
     Active Substance: CALCIUM CHLORIDE ANHYDROUS\POTASSIUM CHLORIDE\SODIUM CHLORIDE\SODIUM LACTATE
     Indication: Electrolyte substitution therapy
     Dosage: UNK
     Route: 065
     Dates: start: 20171116, end: 20171116
  49. CALCIUM CHLORIDE ANHYDROUS\POTASSIUM CHLORIDE\SODIUM CHLORIDE\SODIUM L [Concomitant]
     Active Substance: CALCIUM CHLORIDE ANHYDROUS\POTASSIUM CHLORIDE\SODIUM CHLORIDE\SODIUM LACTATE
     Indication: Fluid replacement
  50. FLOMOXEF SODIUM [Concomitant]
     Active Substance: FLOMOXEF SODIUM
     Indication: Postoperative care
     Dosage: UNK
     Route: 065
     Dates: start: 20171202, end: 20171203
  51. FURMETHY [Concomitant]
     Indication: Nutritional supplementation
     Dosage: UNK
     Route: 065
     Dates: start: 20170913, end: 20170914
  52. FUROSEMIDE [Concomitant]
     Active Substance: FUROSEMIDE
     Indication: Prophylaxis
     Dosage: UNK
     Route: 065
     Dates: start: 20170830
  53. PRIMPERAN [Concomitant]
     Active Substance: METOCLOPRAMIDE HYDROCHLORIDE
     Indication: Prophylaxis
     Dosage: UNK
     Route: 065
     Dates: end: 20170914
  54. PREDONINE [Concomitant]
     Active Substance: PREDNISOLONE
     Indication: Prophylaxis
     Dosage: UNK
     Route: 065
     Dates: start: 20170901
  55. MAXIPIME [Concomitant]
     Active Substance: CEFEPIME HYDROCHLORIDE
     Indication: Infusion related reaction
     Dosage: UNK
     Route: 065
     Dates: start: 20170907, end: 20170913
  56. MAXIPIME [Concomitant]
     Active Substance: CEFEPIME HYDROCHLORIDE
     Dosage: UNK
     Route: 065
     Dates: start: 20171014, end: 20171020
  57. AMPICILLIN SODIUM\SULBACTAM SODIUM [Concomitant]
     Active Substance: AMPICILLIN SODIUM\SULBACTAM SODIUM
     Indication: Infusion related reaction
     Dosage: UNK
     Route: 042
     Dates: start: 20170907, end: 20170913
  58. AMPICILLIN SODIUM\SULBACTAM SODIUM [Concomitant]
     Active Substance: AMPICILLIN SODIUM\SULBACTAM SODIUM
     Dosage: UNK
     Route: 042
     Dates: start: 20171014, end: 20171020
  59. BIAPENEM [Concomitant]
     Active Substance: BIAPENEM
     Indication: Infusion related reaction
     Dosage: UNK
     Route: 065
     Dates: start: 20170914, end: 20170927
  60. BIAPENEM [Concomitant]
     Active Substance: BIAPENEM
     Dosage: UNK
     Route: 065
     Dates: start: 20171020, end: 20171102
  61. XYLOCAINE [Concomitant]
     Active Substance: LIDOCAINE HYDROCHLORIDE
     Indication: Aphthous ulcer
     Dosage: UNK
     Route: 049
     Dates: start: 20170915, end: 20170925
  62. SODIUM GUALENATE MONOHYDRATE [Concomitant]
     Active Substance: SODIUM GUALENATE MONOHYDRATE
     Indication: Aphthous ulcer
     Dosage: UNK
     Route: 049
     Dates: start: 20170915, end: 20170925
  63. DEXTROSE [Concomitant]
     Active Substance: DEXTROSE
     Indication: Prophylaxis
     Dosage: UNK
     Route: 065
     Dates: start: 20171025, end: 20171102
  64. FILGRASTIM [Concomitant]
     Active Substance: FILGRASTIM
     Indication: Prophylaxis
     Dosage: UNK
     Route: 065
     Dates: start: 20170906
  65. DEXTROSE [Concomitant]
     Active Substance: DEXTROSE
     Indication: Diabetes mellitus
     Dosage: UNK
     Route: 065
     Dates: start: 20170909, end: 20170913
  66. FLURBIPROFEN AXETIL [Concomitant]
     Active Substance: FLURBIPROFEN AXETIL
     Indication: Abdominal pain
     Dosage: UNK
     Route: 065
     Dates: start: 20170906, end: 20170921
  67. FLURBIPROFEN AXETIL [Concomitant]
     Active Substance: FLURBIPROFEN AXETIL
     Indication: Infusion related reaction
  68. ELNEOPA NF NO.1 [Concomitant]
     Indication: Nutritional supplementation
     Dosage: UNK
     Route: 065
     Dates: start: 20171019
  69. AMINO ACIDS\DEXTROSE\ELECTROLYTES NOS\MINERALS\VITAMINS [Concomitant]
     Active Substance: AMINO ACIDS\DEXTROSE\ELECTROLYTES NOS\MINERALS\VITAMINS
     Indication: Nutritional supplementation
     Dosage: UNK
     Route: 065
     Dates: end: 20170913
  70. MICAFUNGIN SODIUM [Concomitant]
     Active Substance: MICAFUNGIN SODIUM
     Indication: Infusion related reaction
     Dosage: UNK
     Route: 065
     Dates: start: 20170917, end: 20170927
  71. MICAFUNGIN SODIUM [Concomitant]
     Active Substance: MICAFUNGIN SODIUM
     Dosage: UNK
     Route: 065
     Dates: start: 20171020, end: 20171102
  72. BETAMIPRON\PANIPENEM [Concomitant]
     Active Substance: BETAMIPRON\PANIPENEM
     Indication: Infusion related reaction
     Dosage: UNK
     Route: 065
     Dates: start: 20170928, end: 20170930
  73. AMIKACIN SULFATE [Concomitant]
     Active Substance: AMIKACIN SULFATE
     Indication: Infusion related reaction
     Dosage: UNK
     Route: 065
     Dates: start: 20171022, end: 20171102
  74. AMBISOME [Concomitant]
     Active Substance: AMPHOTERICIN B
     Indication: Aspergillus test positive
     Dosage: UNK
     Route: 065
     Dates: start: 20171025, end: 20171102
  75. HERBALS [Concomitant]
     Active Substance: HERBALS
     Indication: Hallucination, visual
     Dosage: UNK
     Route: 048
     Dates: start: 20171205, end: 20171215
  76. HERBALS [Concomitant]
     Active Substance: HERBALS
     Indication: Delirium
  77. POTASSIUM ASPARTATE [Concomitant]
     Active Substance: POTASSIUM ASPARTATE
     Indication: Blood potassium decreased
     Dosage: UNK
     Route: 065
     Dates: start: 20171208, end: 20171212

REACTIONS (19)
  - Diabetes mellitus [Recovering/Resolving]
  - Cytomegalovirus test positive [Recovered/Resolved]
  - Hallucination, visual [Recovered/Resolved]
  - Delirium [Recovered/Resolved]
  - Pulmonary toxicity [Recovered/Resolved]
  - Blood potassium decreased [Recovered/Resolved]
  - Herpes zoster [Recovering/Resolving]
  - Abdominal distension [Recovered/Resolved]
  - Aphthous ulcer [Recovered/Resolved]
  - Dysuria [Recovering/Resolving]
  - Infusion related reaction [Recovering/Resolving]
  - Infusion related reaction [Recovering/Resolving]
  - Infusion related reaction [Recovering/Resolving]
  - Blood lactate dehydrogenase increased [Recovered/Resolved]
  - Malaise [Recovered/Resolved]
  - Abdominal pain [Recovered/Resolved]
  - Rash [Recovered/Resolved]
  - Rash erythematous [Recovered/Resolved]
  - Aspergillus test positive [Unknown]

NARRATIVE: CASE EVENT DATE: 20170831
